FAERS Safety Report 8387140-X (Version None)
Quarter: 2012Q2

REPORT INFORMATION
  Report Type: 
  Country: None (occurrence: None)
  Receive Date: 20120525
  Receipt Date: 20111205
  Transmission Date: 20120825
  Serious: Yes (Other)
  Sender: FDA-Public Use
  Company Number: US-ROCHE-1019073

PATIENT
  Sex: Female
  Weight: 81.72 kg

DRUGS (18)
  1. ALLEGRA [Concomitant]
  2. COUMADIN [Concomitant]
  3. IRON [Concomitant]
  4. CYMBALTA [Concomitant]
  5. METFORMIN HCL [Concomitant]
  6. STIBOCAPTATE [Concomitant]
  7. BUTISOL [Concomitant]
     Indication: DEPRESSION
  8. PROVENTIL [Concomitant]
  9. SINGULAIR [Concomitant]
  10. ZOCOR [Concomitant]
  11. CYCLOSPORINE [Concomitant]
     Indication: DEPRESSION
  12. ACTEMRA [Suspect]
     Indication: RHEUMATOID ARTHRITIS
     Route: 042
     Dates: start: 20110803
  13. LOTREL [Concomitant]
  14. TOPROL-XL [Concomitant]
  15. PRILOSEC [Concomitant]
  16. ADVAIR DISKUS 100/50 [Concomitant]
  17. NEURONTIN [Concomitant]
  18. CYANOCOBALAMIN [Concomitant]

REACTIONS (4)
  - HYPERHIDROSIS [None]
  - HEADACHE [None]
  - AGITATED DEPRESSION [None]
  - TEMPERATURE REGULATION DISORDER [None]
